FAERS Safety Report 6505115-X (Version None)
Quarter: 2009Q4

REPORT INFORMATION
  Report Type: 
  Country: None (occurrence: None)
  Receive Date: 20091218
  Receipt Date: 20091208
  Transmission Date: 20100525
  Serious: Yes (Hospitalization)
  Sender: FDA-Public Use
  Company Number: PHHY2009JP54673

PATIENT
  Sex: Male
  Weight: 60 kg

DRUGS (12)
  1. ICL670A ICL+DISTAB [Suspect]
     Indication: IRON OVERLOAD
     Dosage: 1250 MG/DAY
     Route: 048
     Dates: start: 20080818, end: 20090219
  2. ICL670A ICL+DISTAB [Suspect]
     Indication: MYELOPROLIFERATIVE DISORDER
     Dosage: 1250 MG/DAY
     Route: 048
     Dates: start: 20090219, end: 20090805
  3. AMARYL [Concomitant]
     Dosage: 5 MG, UNK
     Route: 048
     Dates: start: 20080818, end: 20090901
  4. AMARYL [Concomitant]
     Dosage: 0.5 MG, UNK
     Route: 048
  5. METFORMIN HCL [Concomitant]
     Dosage: 750 MG, UNK
     Route: 048
     Dates: start: 20080818, end: 20090501
  6. METFORMIN HCL [Concomitant]
     Dosage: 250 MG, UNK
     Route: 048
  7. EURODIN [Concomitant]
     Dosage: 1 MG, UNK
     Route: 048
     Dates: start: 20081202, end: 20090531
  8. MIGLITOL [Concomitant]
     Dosage: 150 MG, UNK
     Dates: start: 20080818
  9. ALESION [Concomitant]
     Dosage: 20 MG, UNK
     Route: 048
     Dates: start: 20080818
  10. AMOBAN [Concomitant]
     Dosage: 7.5 MG, UNK
     Dates: start: 20090707
  11. MYSLEE [Concomitant]
     Dosage: 5 MG, UNK
     Route: 048
     Dates: start: 20090707
  12. RED BLOOD CELLS [Concomitant]
     Dosage: 4 UNITS EVERY 2 TO 3 WEEKS
     Dates: start: 20080909, end: 20090901

REACTIONS (4)
  - ALANINE AMINOTRANSFERASE INCREASED [None]
  - MUSCLE SPASMS [None]
  - PULMONARY MASS [None]
  - RENAL IMPAIRMENT [None]
